FAERS Safety Report 9440420 (Version 1)
Quarter: 2013Q3

REPORT INFORMATION
  Report Type: Spontaneous
  Country: CA (occurrence: None)
  Receive Date: 20130731
  Receipt Date: 20130731
  Transmission Date: 20140515
  Serious: Yes (Other)
  Sender: FDA-Public Use
  Company Number: 2013000030

PATIENT
  Age: 63 Year
  Sex: Male
  Weight: 60.3 kg

DRUGS (5)
  1. ACEON [Suspect]
     Indication: HYPERTENSION
     Route: 048
     Dates: start: 20120312, end: 20120319
  2. APO-GLYBURIDE (GILBENCLAMIDE) [Concomitant]
  3. METFORMIN (METFORMIN) [Concomitant]
  4. CRESTOR (ROSUVASTATIN CALCIUM) [Concomitant]
  5. HYDROCHLOROTHIAZIDE (HYDROCHLOROTHIAZIDE) [Concomitant]

REACTIONS (3)
  - Haemoptysis [None]
  - Gastrooesophageal reflux disease [None]
  - Sputum discoloured [None]
